FAERS Safety Report 25673460 (Version 1)
Quarter: 2025Q3

REPORT INFORMATION
  Report Type: Spontaneous
  Country: US (occurrence: US)
  Receive Date: 20250813
  Receipt Date: 20250813
  Transmission Date: 20251021
  Serious: No
  Sender: Kenvue
  Company Number: US-KENVUE-20250802850

PATIENT
  Sex: Female

DRUGS (8)
  1. MENS ROGAINE EXTRA STRENGTH [Suspect]
     Active Substance: MINOXIDIL
     Indication: Alopecia
     Route: 061
     Dates: start: 2025
  2. Viviscal hair growth [Concomitant]
     Indication: Alopecia
     Route: 065
  3. bkind products [Concomitant]
     Indication: Product used for unknown indication
     Route: 065
  4. paul mitchell Shampoo [Concomitant]
     Indication: Product used for unknown indication
     Route: 065
  5. Amika frizz-me-not treatment [Concomitant]
     Indication: Hair texture abnormal
     Route: 065
  6. unite hair 7Seconds Detangler [Concomitant]
     Indication: Product used for unknown indication
     Route: 065
  7. Ultimate Repair Overnight Treatment wella [Concomitant]
     Indication: Product used for unknown indication
     Route: 065
  8. Miracle Oil [Concomitant]
     Indication: Product used for unknown indication
     Route: 065

REACTIONS (4)
  - Application site pruritus [Unknown]
  - Product use issue [Unknown]
  - Intentional product misuse [Unknown]
  - Therapeutic response unexpected [Unknown]

NARRATIVE: CASE EVENT DATE: 20250101
